FAERS Safety Report 12332269 (Version 1)
Quarter: 2016Q2

REPORT INFORMATION
  Report Type: Spontaneous
  Country: US (occurrence: US)
  Receive Date: 20160504
  Receipt Date: 20160504
  Transmission Date: 20160815
  Serious: No
  Sender: FDA-Public Use
  Company Number: US-ROCHE-1648771

PATIENT
  Sex: Male
  Weight: 81.72 kg

DRUGS (1)
  1. ESBRIET [Suspect]
     Active Substance: PIRFENIDONE
     Indication: IDIOPATHIC PULMONARY FIBROSIS
     Dosage: 2403 MG DAILY PO 3 CAPS PO TID
     Route: 048
     Dates: start: 20150305

REACTIONS (6)
  - Dermatitis [Unknown]
  - Paraesthesia [Unknown]
  - Erythema [Unknown]
  - Hypoaesthesia [Unknown]
  - Rash [Unknown]
  - Skin exfoliation [Unknown]
